FAERS Safety Report 7341472-2 (Version None)
Quarter: 2011Q1

REPORT INFORMATION
  Report Type: 
  Country: None (occurrence: None)
  Receive Date: 20110309
  Receipt Date: 20110302
  Transmission Date: 20110831
  Serious: Yes (Other)
  Sender: FDA-Public Use
  Company Number: CA-ROCHE-763670

PATIENT
  Sex: Female

DRUGS (8)
  1. BEVACIZUMAB [Suspect]
     Indication: GLIOBLASTOMA
     Dosage: FORM: INFUSION
     Route: 042
     Dates: start: 20101028
  2. KEPPRA [Concomitant]
     Route: 048
  3. DEXAMETHASONE [Concomitant]
     Route: 048
  4. TEGRETOL [Concomitant]
     Dosage: 400 MG (3/2 TABLETS) DIE
     Route: 048
  5. DECADRON [Concomitant]
  6. CEENU [Concomitant]
  7. SYNTHROID [Concomitant]
     Dosage: DOSE: 0.512 MG DIE
     Route: 048
  8. PANTOLOC [Concomitant]
     Dosage: DOSE: 40 MG DIE
     Route: 048

REACTIONS (4)
  - SPEECH DISORDER [None]
  - HEADACHE [None]
  - REFUSAL OF TREATMENT BY PATIENT [None]
  - HYPOAESTHESIA ORAL [None]
